FAERS Safety Report 6208942-1 (Version None)
Quarter: 2009Q2

REPORT INFORMATION
  Report Type: 
  Country: None (occurrence: None)
  Receive Date: 20090529
  Receipt Date: 20090521
  Transmission Date: 20091009
  Serious: Yes (Hospitalization, Disabling)
  Sender: FDA-Public Use
  Company Number: GB-MERCK-0810GBR00098

PATIENT
  Age: 36 Year
  Sex: Male

DRUGS (6)
  1. SINGULAIR [Suspect]
     Indication: ASTHMA
     Route: 048
     Dates: start: 20050101
  2. THEOPHYLLINE [Concomitant]
     Route: 065
  3. CORTICOSTEROIDS (UNSPECIFIED) [Concomitant]
     Route: 065
  4. FLUTICASONE PROPIONATE AND SALMETEROL XINAFOATE [Concomitant]
     Route: 065
  5. TERBUTALINE SULFATE [Concomitant]
     Route: 065
  6. MYCOPHENOLATE MOFETIL [Concomitant]
     Route: 065

REACTIONS (13)
  - ALLERGIC GRANULOMATOUS ANGIITIS [None]
  - ASTHMA [None]
  - FACIAL PAIN [None]
  - HYPOAESTHESIA [None]
  - HYPOSMIA [None]
  - INFLUENZA LIKE ILLNESS [None]
  - JOINT SWELLING [None]
  - MYALGIA [None]
  - NASAL CONGESTION [None]
  - PARAESTHESIA [None]
  - PRURITUS [None]
  - RHINORRHOEA [None]
  - SNEEZING [None]
